FAERS Safety Report 8339050-1 (Version None)
Quarter: 2012Q2

REPORT INFORMATION
  Report Type: 
  Country: None (occurrence: None)
  Receive Date: 20120502
  Receipt Date: 20120425
  Transmission Date: 20120825
  Serious: Yes (Hospitalization)
  Sender: FDA-Public Use
  Company Number: TPA2012A02378

PATIENT
  Age: 81 Year
  Sex: Male

DRUGS (1)
  1. PIOGLITAZONE HCL [Suspect]
     Indication: CARDIOVASCULAR EVENT PROPHYLAXIS

REACTIONS (4)
  - CARDIOMYOPATHY [None]
  - SUDDEN CARDIAC DEATH [None]
  - VASCULAR GRAFT OCCLUSION [None]
  - CARDIAC FAILURE CONGESTIVE [None]
